FAERS Safety Report 8658222 (Version 2)
Quarter: 2012Q4

REPORT INFORMATION
  Report Type: 
  Country: FR (occurrence: FR)
  Receive Date: 20120710
  Receipt Date: 20120918
  Transmission Date: 20130627
  Serious: Yes (Hospitalization)
  Sender: FDA-Public Use
  Company Number: FR-GLAXOSMITHKLINE-B0811928A

PATIENT
  Age: 81 None
  Sex: Male

DRUGS (14)
  1. AVODART [Suspect]
     Indication: PRODUCT USED FOR UNKNOWN INDICATION
     Dosage: .5MG Per day
     Route: 048
  2. NORSET [Suspect]
     Indication: DEPRESSION
     Route: 048
     Dates: start: 20120102, end: 20120204
  3. LOXEN [Suspect]
     Indication: PRODUCT USED FOR UNKNOWN INDICATION
     Route: 048
     Dates: start: 2007
  4. SOTALOL [Suspect]
     Indication: PRODUCT USED FOR UNKNOWN INDICATION
     Dosage: 50MG Unknown
     Route: 048
     Dates: start: 2009
  5. COAPROVEL [Suspect]
     Indication: PRODUCT USED FOR UNKNOWN INDICATION
     Route: 048
     Dates: start: 2006
  6. NABUCOX [Suspect]
     Indication: PRODUCT USED FOR UNKNOWN INDICATION
     Dosage: 500MG Twice per day
     Route: 065
     Dates: start: 2010
  7. PIASCLEDINE [Suspect]
     Dosage: 300MG See dosage text
     Route: 048
     Dates: start: 2007
  8. PARIET [Suspect]
     Indication: PRODUCT USED FOR UNKNOWN INDICATION
     Dosage: 20MG Twice per day
     Dates: start: 2010
  9. IBUPROFENE [Suspect]
     Indication: PRODUCT USED FOR UNKNOWN INDICATION
  10. METFORMIN [Suspect]
     Indication: PRODUCT USED FOR UNKNOWN INDICATION
     Dosage: 500MG Twice per day
     Route: 065
  11. ZOPICLONE [Suspect]
     Indication: PRODUCT USED FOR UNKNOWN INDICATION
     Dosage: 7.5MG Per day
  12. ATARAX [Suspect]
     Indication: PRODUCT USED FOR UNKNOWN INDICATION
  13. CODOLIPRANE [Suspect]
     Indication: PRODUCT USED FOR UNKNOWN INDICATION
  14. TAHOR [Suspect]
     Indication: PRODUCT USED FOR UNKNOWN INDICATION
     Dosage: 10MG Per day

REACTIONS (9)
  - Oedema [Recovering/Resolving]
  - Pain in extremity [Recovering/Resolving]
  - Erythema [Unknown]
  - Induration [Not Recovered/Not Resolved]
  - Wound [Unknown]
  - Insomnia [Unknown]
  - Gait disturbance [Unknown]
  - Weight increased [Unknown]
  - Oedema peripheral [None]
